FAERS Safety Report 8919113 (Version 1)
Quarter: 2012Q4

REPORT INFORMATION
  Report Type: Report from Study
  Country: JP (occurrence: JP)
  Receive Date: 20121121
  Receipt Date: 20121121
  Transmission Date: 20130627
  Serious: Yes (Hospitalization)
  Sender: FDA-Public Use
  Company Number: JP-VERTEX PHARMACEUTICAL INC.-AE-2012-003626

PATIENT
  Age: 57 Year
  Sex: Female

DRUGS (91)
  1. VX-950 (TELAPREVIR) [Suspect]
     Indication: CHRONIC HEPATITIS C
     Dosage: 2250 mg, qd
     Route: 048
     Dates: start: 20120126, end: 20120311
  2. VX-950 (TELAPREVIR) [Suspect]
     Dosage: 1500 mg, qd
     Route: 048
     Dates: start: 20120312, end: 20120419
  3. PEGINTRON                          /01543001/ [Suspect]
     Indication: CHRONIC HEPATITIS C
     Dosage: 1.5 ?g/kg, qw
     Route: 058
     Dates: start: 20120126, end: 20120126
  4. PEGINTRON                          /01543001/ [Suspect]
     Dosage: 30 ?g, qw
     Route: 058
     Dates: start: 20120202, end: 20120202
  5. PEGINTRON                          /01543001/ [Suspect]
     Dosage: 50 ?g, qw
     Route: 058
     Dates: start: 20120209, end: 20120209
  6. PEGINTRON                          /01543001/ [Suspect]
     Dosage: 25?g, qw
     Route: 058
     Dates: start: 20120216
  7. PEGINTRON                          /01543001/ [Suspect]
     Dosage: 25 ?g, qw
     Route: 058
     Dates: start: 20120308, end: 20120308
  8. PEGINTRON                          /01543001/ [Suspect]
     Dosage: 50 ?g, qw
     Route: 058
     Dates: start: 20120315, end: 20120315
  9. PEGINTRON                          /01543001/ [Suspect]
     Dosage: 1.5 ?g/kg, qw
     Route: 058
     Dates: start: 20120322, end: 20120426
  10. REBETOL [Suspect]
     Indication: CHRONIC HEPATITIS C
     Dosage: 600 mg, qd
     Route: 048
     Dates: start: 20120126, end: 20120201
  11. REBETOL [Suspect]
     Dosage: 400 mg, qd
     Route: 048
     Dates: start: 20120202, end: 20120307
  12. REBETOL [Suspect]
     Dosage: 200 mg, qd
     Route: 048
     Dates: start: 20120308, end: 20120311
  13. REBETOL [Suspect]
     Dosage: 200 mg, qd
     Route: 048
     Dates: start: 20120316, end: 20120428
  14. REBETOL [Suspect]
     Dosage: 400 mg, qd
     Route: 048
     Dates: start: 20120329, end: 20120427
  15. PREDNISOLONE [Suspect]
     Indication: ADVERSE EVENT
     Dosage: 30 mg, qd
     Route: 048
     Dates: start: 20120308, end: 20120311
  16. PREDNISOLONE [Suspect]
     Dosage: 20 mg, qd
     Route: 048
     Dates: start: 20120312, end: 20120314
  17. PREDNISOLONE [Suspect]
     Dosage: 40 mg, qd
     Route: 048
     Dates: start: 20120315, end: 20120320
  18. PREDNISOLONE [Suspect]
     Dosage: 75 mg, qd
     Route: 048
     Dates: start: 20120321, end: 20120321
  19. PREDNISOLONE [Suspect]
     Dosage: 35 mg, qd
     Route: 048
     Dates: start: 20120322, end: 20120324
  20. PREDNISOLONE [Suspect]
     Dosage: 35 mg, qd
     Route: 048
     Dates: start: 20120326, end: 20120328
  21. PREDNISOLONE [Suspect]
     Dosage: 30 mg, qd
     Route: 048
     Dates: start: 20120329, end: 20120404
  22. PREDNISOLONE [Suspect]
     Dosage: 25 mg, qd
     Route: 048
     Dates: start: 20120405, end: 20120406
  23. PREDNISOLONE [Suspect]
     Dosage: 50 mg, qd
     Route: 048
     Dates: start: 20120407, end: 20120407
  24. PREDNISOLONE [Suspect]
     Dosage: 25 mg, qd
     Route: 048
     Dates: start: 20120408, end: 20120410
  25. PREDNISOLONE [Suspect]
     Dosage: 20 mg, qd
     Route: 048
     Dates: start: 20120412, end: 20120418
  26. PREDNISOLONE [Suspect]
     Dosage: 15 mg, qd
     Route: 048
     Dates: start: 20120419, end: 20120425
  27. PREDNISOLONE [Suspect]
     Dosage: 10 mg, qd
     Route: 048
     Dates: start: 20120426, end: 20120508
  28. PREDNISOLONE [Suspect]
     Dosage: 5 mg, qd
     Route: 048
     Dates: start: 20120509, end: 20120515
  29. PREDNISOLONE [Suspect]
     Dosage: 10 mg, qd
     Route: 048
     Dates: start: 20120516, end: 20120516
  30. PREDNISOLONE [Suspect]
     Dosage: 5 mg, qd
     Route: 048
     Dates: start: 20120517, end: 20120521
  31. PROMAC                             /01312301/ [Concomitant]
     Dosage: 2 DF, qd
     Route: 048
     Dates: start: 20120613, end: 20120712
  32. NAUZELIN [Concomitant]
     Route: 048
     Dates: start: 20120301, end: 20120321
  33. TALION OD [Concomitant]
     Route: 048
     Dates: start: 20120302, end: 20120307
  34. FULMETA: OINTMENT [Concomitant]
     Route: 061
     Dates: start: 20120302, end: 20120302
  35. FULMETA: OINTMENT [Concomitant]
     Route: 061
     Dates: start: 20120318, end: 20120318
  36. FULMETA: OINTMENT [Concomitant]
     Route: 061
     Dates: start: 20120502, end: 20120502
  37. FULMETA: OINTMENT [Concomitant]
     Route: 061
     Dates: start: 20120509, end: 20120509
  38. FULMETA: OINTMENT [Concomitant]
     Route: 061
     Dates: start: 20120509, end: 20120509
  39. FULMETA: OINTMENT [Concomitant]
     Route: 061
     Dates: start: 20120516, end: 20120516
  40. FULMETA: OINTMENT [Concomitant]
     Route: 061
     Dates: start: 20120523, end: 20120523
  41. TAKEPRON [Concomitant]
     Dosage: 2 DF, qd
     Route: 048
     Dates: start: 20120319, end: 20120321
  42. TAKEPRON [Concomitant]
     Dosage: 1 DF, qd
     Route: 048
     Dates: start: 20120322, end: 20120328
  43. TAKEPRON [Concomitant]
     Dosage: 2 DF, UNK
     Route: 048
     Dates: start: 20120329, end: 20120401
  44. TAKEPRON [Concomitant]
     Dosage: 1 DF, qd
     Route: 048
     Dates: start: 20120402, end: 20120425
  45. TAKEPRON [Concomitant]
     Dosage: 1 DF, qd
     Route: 048
     Dates: start: 20120427, end: 20120515
  46. TAKEPRON [Concomitant]
     Dosage: 1 DF, qd
     Route: 048
     Dates: start: 20120516, end: 20120516
  47. TAKEPRON [Concomitant]
     Dosage: 1 DF, qd
     Route: 048
     Dates: start: 20120517, end: 20120612
  48. TAKEPRON [Concomitant]
     Dosage: 1 UNK, UNK
     Route: 048
     Dates: start: 20120308, end: 20120318
  49. DERMOVATE [Concomitant]
     Route: 061
     Dates: start: 20120308, end: 20120308
  50. DERMOVATE [Concomitant]
     Route: 061
     Dates: start: 20120309, end: 20120309
  51. DERMOVATE [Concomitant]
     Route: 061
     Dates: start: 20120310, end: 20120310
  52. DERMOVATE [Concomitant]
     Route: 061
     Dates: start: 20120314, end: 20120314
  53. DERMOVATE [Concomitant]
     Route: 061
     Dates: start: 20120317, end: 20120317
  54. DERMOVATE [Concomitant]
     Route: 061
     Dates: start: 20120321, end: 20120321
  55. DERMOVATE [Concomitant]
     Route: 061
     Dates: start: 20120324, end: 20120324
  56. DERMOVATE [Concomitant]
     Route: 061
     Dates: start: 20120326, end: 20120326
  57. ATARAX P POWDER [Concomitant]
     Dosage: 0.25 g, qd
     Dates: start: 20120308, end: 20120315
  58. ATARAX P POWDER [Concomitant]
     Dosage: 1.5 g, qd
     Route: 065
     Dates: start: 20120419, end: 20120425
  59. KINDAVATE [Concomitant]
     Route: 061
     Dates: start: 20120308, end: 20120308
  60. KINDAVATE [Concomitant]
     Route: 061
     Dates: start: 20120314, end: 20120314
  61. NERISONA [Concomitant]
     Route: 051
     Dates: start: 20120308, end: 20120308
  62. NERISONA [Concomitant]
     Route: 051
     Dates: start: 20120311, end: 20120311
  63. NERISONA [Concomitant]
     Route: 051
     Dates: start: 20120314, end: 20120314
  64. KENALOG [Concomitant]
     Route: 061
     Dates: start: 20120308, end: 20120308
  65. MYSLEE [Concomitant]
     Dosage: 5 mg, qd
     Route: 048
     Dates: start: 20120308, end: 20120309
  66. MYSLEE [Concomitant]
     Dosage: 5 mg, qd
     Route: 048
     Dates: start: 20120311, end: 20120404
  67. MYSLEE [Concomitant]
     Dosage: 10 mg, qd
     Route: 048
     Dates: start: 20120405, end: 20120405
  68. MYSLEE [Concomitant]
     Dosage: 5 mg, qd
     Route: 048
     Dates: start: 20120406, end: 20120501
  69. MYSLEE [Concomitant]
     Dosage: 5 mg, UNK
     Route: 048
     Dates: start: 20120505, end: 20120511
  70. AZUNOL 5 P [Concomitant]
     Route: 048
     Dates: start: 20120309, end: 20120309
  71. EKSALB [Concomitant]
     Dosage: 1 DF, qd
     Route: 051
     Dates: start: 20120324, end: 20120324
  72. RIVOTRIL [Concomitant]
     Dosage: 0.6 g, qd
     Route: 048
     Dates: start: 20120327, end: 20120402
  73. RIVOTRIL [Concomitant]
     Dosage: 0.9 g, qd
     Route: 048
     Dates: start: 20120403, end: 20120411
  74. RIVOTRIL [Concomitant]
     Dosage: 1.8 g, qd
     Route: 048
     Dates: start: 20120412, end: 20120412
  75. RIVOTRIL [Concomitant]
     Dosage: 0.9 g, qd
     Route: 048
     Dates: start: 20120413, end: 20120429
  76. ALMARL [Concomitant]
     Dosage: 10 mg, qd
     Route: 048
     Dates: start: 20120413, end: 20120429
  77. CALONAL [Concomitant]
     Dosage: 2 g, qd
     Route: 048
     Dates: start: 20120419, end: 20120428
  78. LASIX                              /00032601/ [Concomitant]
     Dosage: 20 mg, qd
     Route: 048
     Dates: start: 20120423, end: 20120516
  79. CYMBALTA [Concomitant]
     Dosage: 20 mg, qd
     Route: 048
     Dates: start: 20120427, end: 20120429
  80. POSTERISAN                         /05730901/ [Concomitant]
     Dosage: 28 g, qd
     Route: 061
     Dates: start: 20120508, end: 20120508
  81. MAGLAX [Concomitant]
     Dosage: 990 mg, qd
     Route: 048
     Dates: start: 20120508, end: 20120521
  82. PREDOHAN [Concomitant]
     Route: 048
     Dates: start: 20120426, end: 20120501
  83. PREDOHAN [Concomitant]
     Route: 048
     Dates: start: 20120509, end: 20120516
  84. HIRUDOID [Concomitant]
     Dosage: 160 g, qd
     Route: 061
     Dates: start: 20120419, end: 20120419
  85. HIRUDOID [Concomitant]
     Dosage: 160 g, qd
     Route: 061
     Dates: start: 20120426, end: 20120426
  86. HIRUDOID [Concomitant]
     Dosage: 100 g, qd
     Route: 061
     Dates: start: 20120509, end: 20120509
  87. HIRUDOID [Concomitant]
     Dosage: 100 g, qd
     Route: 061
     Dates: start: 20120516, end: 20120516
  88. HIRUDOID [Concomitant]
     Dosage: 200 g, qd
     Route: 061
     Dates: start: 20120523, end: 20120523
  89. HIRUDOID [Concomitant]
     Dosage: 400 mg, qd
     Route: 061
     Dates: start: 20120606, end: 20120606
  90. AZUNOL [Concomitant]
     Dosage: 5 g, qd
     Route: 061
     Dates: start: 20120320, end: 20120320
  91. 2% SODIUM BICARBONATE [Concomitant]
     Dosage: 1 DF, qd
     Route: 065
     Dates: start: 20120430, end: 20120430

REACTIONS (2)
  - Toxic skin eruption [Recovered/Resolved]
  - Anxiety disorder [Recovered/Resolved]
